FAERS Safety Report 22001771 (Version 5)
Quarter: 2025Q1

REPORT INFORMATION
  Report Type: Report from Study
  Country: ES (occurrence: ES)
  Receive Date: 20230216
  Receipt Date: 20250121
  Transmission Date: 20250409
  Serious: No
  Sender: TAKEDA
  Company Number: ES-TAKEDA-2022TUS093179

PATIENT
  Age: 44 Year
  Sex: Female

DRUGS (13)
  1. TEDUGLUTIDE [Suspect]
     Active Substance: TEDUGLUTIDE
     Indication: Short-bowel syndrome
     Dosage: 2.71 MILLIGRAM, QD
     Dates: start: 20180507, end: 20190918
  2. TEDUGLUTIDE [Suspect]
     Active Substance: TEDUGLUTIDE
  3. TEDUGLUTIDE [Suspect]
     Active Substance: TEDUGLUTIDE
  4. TEDUGLUTIDE [Suspect]
     Active Substance: TEDUGLUTIDE
  5. SPIRONOLACTONE [Concomitant]
     Active Substance: SPIRONOLACTONE
     Indication: Ascites
     Dosage: 25 MILLIGRAM, BID
     Dates: start: 20210513
  6. FUROSEMIDE [Concomitant]
     Active Substance: FUROSEMIDE
     Indication: Ascites
  7. AUXINA A E [Concomitant]
     Indication: Short-bowel syndrome
     Dosage: 5000 INTERNATIONAL UNIT, BID
     Dates: start: 20200219
  8. ALMAGATE [Concomitant]
     Active Substance: ALMAGATE
     Indication: Short-bowel syndrome
  9. HIDROFEROL CHOQUE [Concomitant]
     Indication: Short-bowel syndrome
     Dosage: 1 MILLIGRAM, 1/WEEK
     Dates: start: 20221219
  10. METRONIDAZOLE [Concomitant]
     Active Substance: METRONIDAZOLE
     Indication: Anal abscess
  11. Flatoril [Concomitant]
     Indication: Flatulence
     Dosage: 500 MILLIGRAM, TID
     Dates: start: 2023
  12. BROMAZEPAM [Concomitant]
     Active Substance: BROMAZEPAM
     Indication: Sleep disorder
     Dosage: 1.5 MILLIGRAM, QD
     Dates: start: 20220517
  13. GELATINE HYDROLYSATE;MAGNESIUM [Concomitant]
     Indication: Short-bowel syndrome
     Dosage: UNK UNK, QD

REACTIONS (1)
  - Anal fistula [Not Recovered/Not Resolved]

NARRATIVE: CASE EVENT DATE: 20221124
